FAERS Safety Report 22299955 (Version 1)
Quarter: 2023Q2

REPORT INFORMATION
  Report Type: Spontaneous
  Country: US (occurrence: None)
  Receive Date: 20230508
  Receipt Date: 20230508
  Transmission Date: 20230722
  Serious: No
  Sender: FDA-Public Use
  Company Number: None

PATIENT
  Sex: Female

DRUGS (1)
  1. STELARA [Suspect]
     Active Substance: USTEKINUMAB
     Indication: Colitis ulcerative
     Dosage: 90MG EVERY 8 WEEKS SUBCUTANEOUS?
     Route: 058
     Dates: start: 202209

REACTIONS (2)
  - Abdominal discomfort [None]
  - Drug ineffective [None]
